FAERS Safety Report 18512034 (Version 1)
Quarter: 2020Q4

REPORT INFORMATION
  Report Type: Spontaneous
  Country: US (occurrence: US)
  Receive Date: 20201117
  Receipt Date: 20201117
  Transmission Date: 20210114
  Serious: Yes (Life-Threatening, Hospitalization)
  Sender: FDA-Public Use
  Company Number: None

PATIENT
  Age: 82 Year
  Sex: Male
  Weight: 60.92 kg

DRUGS (1)
  1. LISINOPRIL. [Suspect]
     Active Substance: LISINOPRIL
     Indication: HYPERTENSION
     Route: 048
     Dates: start: 20170617, end: 20200707

REACTIONS (4)
  - Swollen tongue [None]
  - Angioedema [None]
  - Obstructive airways disorder [None]
  - Lip swelling [None]

NARRATIVE: CASE EVENT DATE: 20200707
